FAERS Safety Report 5996160-1 (Version None)
Quarter: 2008Q4

REPORT INFORMATION
  Report Type: 
  Country: None (occurrence: None)
  Receive Date: 20081212
  Receipt Date: 20081010
  Transmission Date: 20090506
  Serious: No
  Sender: FDA-Public Use
  Company Number: US-ABBOTT-08P-163-0481185-00

PATIENT
  Sex: Female
  Weight: 85.806 kg

DRUGS (9)
  1. HUMIRA [Suspect]
     Indication: CROHN'S DISEASE
     Dates: start: 20081010, end: 20081010
  2. HUMIRA [Suspect]
     Route: 058
  3. LEVOTHYROXINE SODIUM [Concomitant]
     Indication: HYPOTHYROIDISM
     Route: 048
     Dates: start: 19910101
  4. ESTRADIOL [Concomitant]
     Indication: HORMONE REPLACEMENT THERAPY
     Route: 062
  5. SERTRALINE [Concomitant]
     Indication: POSTPARTUM DEPRESSION
     Route: 048
     Dates: start: 20000101
  6. ALPRAZOLAM [Concomitant]
     Indication: POSTPARTUM DEPRESSION
     Route: 048
     Dates: start: 20000101
  7. RABEPRAZOLE SODIUM [Concomitant]
     Indication: ABDOMINAL DISCOMFORT
     Route: 048
     Dates: start: 20040101
  8. ALBUTEROL SULFATE [Concomitant]
     Indication: ASTHMA
     Route: 055
     Dates: start: 19900101
  9. PREDNISONE TAB [Concomitant]
     Indication: DRUG USE FOR UNKNOWN INDICATION

REACTIONS (3)
  - PHARYNGEAL ERYTHEMA [None]
  - RASH [None]
  - THROAT IRRITATION [None]
